FAERS Safety Report 5355352-5 (Version None)
Quarter: 2007Q2

REPORT INFORMATION
  Report Type: 
  Country: None (occurrence: None)
  Receive Date: 20070601
  Receipt Date: 20070403
  Transmission Date: 20071010
  Serious: Yes (Hospitalization)
  Sender: FDA-Public Use
  Company Number: 154795USA

PATIENT
  Age: 78 Year
  Sex: Female

DRUGS (5)
  1. AZILECT [Suspect]
     Dates: start: 20070305, end: 20070403
  2. SINEMET [Concomitant]
  3. ALPRAZOLAM [Concomitant]
  4. TRAMADOL HCL [Concomitant]
  5. ARIPIPRAZOLE [Concomitant]

REACTIONS (3)
  - BLINDNESS [None]
  - CEREBROVASCULAR ACCIDENT [None]
  - DYSARTHRIA [None]
